FAERS Safety Report 7347677-9 (Version None)
Quarter: 2011Q1

REPORT INFORMATION
  Report Type: 
  Country: None (occurrence: None)
  Receive Date: 20110311
  Receipt Date: 20110303
  Transmission Date: 20110831
  Serious: Yes (Hospitalization)
  Sender: FDA-Public Use
  Company Number: A0917572A

PATIENT
  Age: 57 Year
  Sex: Male

DRUGS (2)
  1. COREG [Suspect]
     Dates: start: 20080101
  2. UNSPECIFIED MEDICATIONS [Concomitant]

REACTIONS (1)
  - CARDIAC DISORDER [None]
